FAERS Safety Report 6447339-6 (Version None)
Quarter: 2009Q4

REPORT INFORMATION
  Report Type: 
  Country: None (occurrence: None)
  Receive Date: 20091116
  Receipt Date: 20091030
  Transmission Date: 20100525
  Serious: Yes (Hospitalization)
  Sender: FDA-Public Use
  Company Number: DSA_41935_2009

PATIENT
  Age: 91 Year
  Sex: Female

DRUGS (1)
  1. VASOTEC [Suspect]
     Dosage: (20 MG TABLET DOSE UNSPECIFIED ORAL)
     Route: 048

REACTIONS (4)
  - BALANCE DISORDER [None]
  - HYPERHIDROSIS [None]
  - HYPOTENSION [None]
  - INCORRECT DOSE ADMINISTERED [None]
